FAERS Safety Report 8300161-8 (Version None)
Quarter: 2012Q2

REPORT INFORMATION
  Report Type: 
  Country: None (occurrence: None)
  Receive Date: 20120417
  Receipt Date: 20120404
  Transmission Date: 20120825
  Serious: Yes (Other)
  Sender: FDA-Public Use
  Company Number: 2012AP000947

PATIENT
  Age: 17 Year
  Sex: Female

DRUGS (2)
  1. SERTRALINE HYDROCHLORIDE [Suspect]
     Dosage: 50 MG;
  2. CERAZETTE (DESOGESTREL) [Suspect]

REACTIONS (2)
  - DRUG INTERACTION [None]
  - VAGINAL HAEMORRHAGE [None]
